FAERS Safety Report 17745780 (Version 1)
Quarter: 2020Q2

REPORT INFORMATION
  Report Type: Spontaneous
  Country: FR (occurrence: FR)
  Receive Date: 20200505
  Receipt Date: 20200505
  Transmission Date: 20200714
  Serious: Yes (Life-Threatening)
  Sender: FDA-Public Use
  Company Number: NVSC2020FR120819

PATIENT
  Age: 23 Year
  Sex: Male
  Weight: 55 kg

DRUGS (6)
  1. PREDNISONE. [Suspect]
     Active Substance: PREDNISONE
     Indication: BASEDOW^S DISEASE
     Dosage: 30 MG
     Route: 065
     Dates: start: 20200114, end: 20200119
  2. HYPNOVEL [Concomitant]
     Active Substance: MIDAZOLAM
     Indication: PAIN
     Dosage: UNK
     Route: 042
     Dates: start: 20200113, end: 20200113
  3. PROPOFOL. [Suspect]
     Active Substance: PROPOFOL
     Indication: PAIN
     Dosage: 20 ML, QH
     Route: 042
     Dates: start: 20200113, end: 20200119
  4. NEO-MERCAZOLE [Suspect]
     Active Substance: CARBIMAZOLE
     Indication: BASEDOW^S DISEASE
     Route: 048
     Dates: start: 20200116, end: 20200118
  5. GENTAMICINE [Concomitant]
     Active Substance: GENTAMICIN
     Indication: INFECTION
     Dosage: 480 MG, QD
     Route: 065
     Dates: start: 20200116, end: 20200117
  6. KETAMINE [Suspect]
     Active Substance: KETAMINE
     Indication: PAIN
     Dosage: UNK, 3 A 6 MOL/H
     Route: 042
     Dates: start: 20200114, end: 20200119

REACTIONS (2)
  - Hepatitis cholestatic [Recovering/Resolving]
  - Hepatitis [Recovering/Resolving]

NARRATIVE: CASE EVENT DATE: 20200118
